FAERS Safety Report 5023634-2 (Version None)
Quarter: 2006Q2

REPORT INFORMATION
  Report Type: 
  Country: None (occurrence: None)
  Receive Date: 20060606
  Receipt Date: 20060523
  Transmission Date: 20061013
  Serious: Yes (Other)
  Sender: FDA-Public Use
  Company Number: GB-2005-012301

PATIENT
  Age: 27 Year
  Sex: Male

DRUGS (13)
  1. LEUKINE [Suspect]
     Indication: CROHN'S DISEASE
     Dosage: 6 UG/KG, 1X/DAY, SUBCUTANEOUS
     Route: 058
     Dates: start: 20050601
  2. FERROUS SULFATE TAB [Concomitant]
  3. FOLIC ACID [Concomitant]
  4. POLYETHYLENE GLYCOL (MACROGOL) [Concomitant]
  5. TRAMADOL HCL [Concomitant]
  6. KETOCONAZOLE (KETOCONAZLE) [Concomitant]
  7. ASPIRIN [Concomitant]
  8. IBUPROFEN [Concomitant]
  9. CITRAMAG (MAGNESIUM CITRATE) [Concomitant]
  10. SENNA (SENNA ALEXANDRINA) [Concomitant]
  11. MIDAZOLAM HCL [Concomitant]
  12. HYOSCINE HBR HYT [Concomitant]
  13. FENTANYL [Concomitant]

REACTIONS (5)
  - ALCOHOL USE [None]
  - DISEASE RECURRENCE [None]
  - HYPERHIDROSIS [None]
  - HYPOGLYCAEMIA [None]
  - SOMNOLENCE [None]
